FAERS Safety Report 16593707 (Version 1)
Quarter: 2019Q3

REPORT INFORMATION
  Report Type: Spontaneous
  Country: GB (occurrence: GB)
  Receive Date: 20190718
  Receipt Date: 20190718
  Transmission Date: 20191004
  Serious: Yes (Disabling, Other)
  Sender: FDA-Public Use
  Company Number: GB-MYLANLABS-2019M1066980

PATIENT
  Age: 68 Year
  Sex: Male

DRUGS (7)
  1. VITAMIN B12 [Concomitant]
     Active Substance: CYANOCOBALAMIN
  2. RISPERIDONE. [Suspect]
     Active Substance: RISPERIDONE
     Indication: NEUROPSYCHIATRIC SYMPTOMS
     Dosage: 0.5 MILLIGRAM
     Route: 048
  3. COLECALCIFEROL [Concomitant]
     Active Substance: CHOLECALCIFEROL
  4. PARACETAMOL [Concomitant]
     Active Substance: ACETAMINOPHEN
  5. HALOPERIDOL. [Concomitant]
     Active Substance: HALOPERIDOL
  6. FOLIC ACID. [Concomitant]
     Active Substance: FOLIC ACID
  7. THIAMINE. [Concomitant]
     Active Substance: THIAMINE

REACTIONS (6)
  - Muscle rigidity [Unknown]
  - Hypotension [Recovered/Resolved]
  - Arthropathy [Unknown]
  - Neuroleptic malignant syndrome [Recovering/Resolving]
  - Salivary hypersecretion [Unknown]
  - Hyperthermia [Recovered/Resolved]

NARRATIVE: CASE EVENT DATE: 20190111
